FAERS Safety Report 8910892 (Version 1)
Quarter: 2012Q4

REPORT INFORMATION
  Report Type: 
  Country: NL (occurrence: NL)
  Receive Date: 20121115
  Receipt Date: 20121115
  Transmission Date: 20130627
  Serious: Yes (Hospitalization, Other)
  Sender: FDA-Public Use
  Company Number: NL-ELI_LILLY_AND_COMPANY-NL201002006282

PATIENT
  Age: 57 Year
  Sex: Female
  Weight: 74.3 kg

DRUGS (6)
  1. FORSTEO [Suspect]
     Indication: OSTEOPOROSIS
     Dosage: UNK UNK, daily (1/D)
     Route: 058
     Dates: start: 20091112, end: 20110919
  2. PERPHENAZINE [Concomitant]
     Indication: PSYCHOTIC DISORDER
     Dosage: 4 mg, as needed
     Route: 048
     Dates: start: 20100204
  3. PROMETHAZINE [Concomitant]
     Dosage: 25 mg, unknown
     Route: 048
     Dates: start: 20100120
  4. DIAZEPAM [Concomitant]
     Dosage: 10 mg, as needed
     Route: 048
  5. NOZINAN [Concomitant]
     Dosage: 25 mg, as needed
     Route: 048
  6. LEXAPRO [Concomitant]
     Indication: DEPRESSION
     Dosage: 10 mg, daily (1/D)
     Route: 048
     Dates: start: 1994

REACTIONS (3)
  - Breast cancer recurrent [Unknown]
  - Weight increased [Unknown]
  - Pollakiuria [Unknown]
